FAERS Safety Report 18384859 (Version 2)
Quarter: 2020Q4

REPORT INFORMATION
  Report Type: Report from Study
  Country: US (occurrence: US)
  Receive Date: 20201015
  Receipt Date: 20201106
  Transmission Date: 20210114
  Serious: No
  Sender: FDA-Public Use
  Company Number: US-SUN PHARMACEUTICAL INDUSTRIES LTD-2020R1-263578

PATIENT
  Sex: Male

DRUGS (2)
  1. BOSENTAN. [Suspect]
     Active Substance: BOSENTAN
     Indication: SKIN ULCER
  2. BOSENTAN. [Suspect]
     Active Substance: BOSENTAN
     Indication: SCLERODERMA
     Dosage: 62.5 MILLIGRAM, BID
     Route: 048

REACTIONS (1)
  - No adverse event [Unknown]
